FAERS Safety Report 18677029 (Version 1)
Quarter: 2020Q4

REPORT INFORMATION
  Report Type: Spontaneous
  Country: NL (occurrence: NL)
  Receive Date: 20201229
  Receipt Date: 20201229
  Transmission Date: 20210114
  Serious: Yes (Other)
  Sender: FDA-Public Use
  Company Number: NL-JAZZ-2020-NL-017240

PATIENT
  Age: 58 Year
  Sex: Male
  Weight: 87.7 kg

DRUGS (3)
  1. DEXAMETHASONE. [Concomitant]
     Active Substance: DEXAMETHASONE
     Indication: PRODUCT USED FOR UNKNOWN INDICATION
     Dosage: UNK
     Route: 042
     Dates: start: 20201014, end: 20201014
  2. GRANISETRONE [Concomitant]
     Indication: PRODUCT USED FOR UNKNOWN INDICATION
     Dosage: UNK
     Route: 042
     Dates: start: 20201014, end: 20201014
  3. ZEPZELCA [Suspect]
     Active Substance: LURBINECTEDIN
     Indication: MESOTHELIOMA
     Dosage: 6.4 MILLIGRAM SECOND CYCLE
     Route: 042
     Dates: start: 20201014, end: 20201014

REACTIONS (1)
  - Vascular pain [Unknown]

NARRATIVE: CASE EVENT DATE: 20201026
